FAERS Safety Report 7358104-X (Version None)
Quarter: 2011Q1

REPORT INFORMATION
  Report Type: 
  Country: None (occurrence: None)
  Receive Date: 20110317
  Receipt Date: 20110311
  Transmission Date: 20110831
  Serious: Yes (Death, Hospitalization, Other)
  Sender: FDA-Public Use
  Company Number: US-PFIZER INC-2005135070

PATIENT
  Sex: Male

DRUGS (18)
  1. WELLBUTRIN SR [Concomitant]
     Dosage: UNK
     Dates: start: 20020228
  2. ZOLOFT [Concomitant]
     Dosage: 50 MG, UNK
     Dates: start: 19981013
  3. NEURONTIN [Suspect]
     Indication: PAIN
  4. PAXIL [Concomitant]
     Dosage: UNK
     Dates: start: 19990302
  5. NEURONTIN [Suspect]
     Indication: DEPRESSION
  6. PRILOSEC [Concomitant]
     Dosage: 20 MG, UNK
     Dates: start: 19990317
  7. NEURONTIN [Suspect]
     Indication: BIPOLAR DISORDER
  8. CLONAZEPAM [Concomitant]
     Dosage: UNK
     Dates: start: 19951101
  9. METHOCARBAMOL [Concomitant]
     Dosage: UNK
     Dates: start: 19991221
  10. PROZAC [Concomitant]
     Dosage: UNK
     Dates: start: 19980526
  11. ULTRAM [Concomitant]
     Dosage: UNK
     Dates: start: 19980424
  12. HYDROCODONE [Concomitant]
     Dosage: UNK
     Dates: start: 19981130
  13. NAPROXEN [Concomitant]
     Dosage: UNK
     Dates: start: 19991221
  14. NEURONTIN [Suspect]
     Indication: BACK PAIN
     Dosage: 300 MG, UNK
     Route: 048
     Dates: start: 20000425, end: 20030101
  15. CYCLOBENZAPRINE [Concomitant]
     Dosage: UNK
     Dates: start: 19991224
  16. ALPRAZOLAM [Suspect]
     Dosage: UNK
     Dates: start: 19980506
  17. ZYPREXA [Concomitant]
     Dosage: 5 MG, UNK
  18. OXYCODONE HCL AND ACETAMINOPHEN [Concomitant]
     Dosage: UNK
     Dates: start: 19990922

REACTIONS (8)
  - SUBSTANCE ABUSE [None]
  - DEPRESSION [None]
  - BACK PAIN [None]
  - TOXICITY TO VARIOUS AGENTS [None]
  - COMPLETED SUICIDE [None]
  - OVERDOSE [None]
  - SUICIDAL IDEATION [None]
  - DRUG INEFFECTIVE [None]
